FAERS Safety Report 6325652-0 (Version None)
Quarter: 2009Q3

REPORT INFORMATION
  Report Type: 
  Country: None (occurrence: None)
  Receive Date: 20090824
  Receipt Date: 20090724
  Transmission Date: 20100115
  Serious: No
  Sender: FDA-Public Use
  Company Number: US-ABBOTT-09P-163-0587129-00

PATIENT
  Age: 50 Year
  Sex: Male
  Weight: 77.18 kg

DRUGS (3)
  1. NIASPAN [Suspect]
     Indication: BLOOD TRIGLYCERIDES INCREASED
     Dosage: 2000MG NIGHTLY
     Route: 048
  2. NIASPAN [Suspect]
  3. NIASPAN [Suspect]
     Dosage: TITRATED 500-2000MG
     Dates: start: 19960101

REACTIONS (4)
  - FLUSHING [None]
  - JOINT SWELLING [None]
  - PRURITUS [None]
  - SWELLING FACE [None]
